FAERS Safety Report 8533186-8 (Version None)
Quarter: 2012Q3

REPORT INFORMATION
  Report Type: 
  Country: None (occurrence: None)
  Receive Date: 20120724
  Receipt Date: 20120710
  Transmission Date: 20120928
  Serious: Yes (Hospitalization, Other)
  Sender: FDA-Public Use
  Company Number: GB-009507513-1207GBR002179

PATIENT

DRUGS (4)
  1. GLIMEPIRIDE [Concomitant]
  2. MIRTAZAPINE [Suspect]
     Indication: DEPRESSION
     Dosage: 30 MG, UNK
     Route: 048
     Dates: start: 20120519
  3. SIMVASTATIN [Concomitant]
  4. METFORMIN HYDROCHLORIDE [Concomitant]

REACTIONS (9)
  - AGITATION [None]
  - ENCEPHALITIS [None]
  - NEUROLEPTIC MALIGNANT SYNDROME [None]
  - CONVULSION [None]
  - BLOOD CREATINE PHOSPHOKINASE INCREASED [None]
  - BLOOD LACTIC ACID INCREASED [None]
  - CSF PROTEIN INCREASED [None]
  - CONFUSIONAL STATE [None]
  - ENCEPHALOPATHY [None]
